FAERS Safety Report 5617405-3 (Version None)
Quarter: 2008Q1

REPORT INFORMATION
  Report Type: 
  Country: None (occurrence: None)
  Receive Date: 20080207
  Receipt Date: 20070823
  Transmission Date: 20080703
  Serious: No
  Sender: FDA-Public Use
  Company Number: A0671388A

PATIENT
  Sex: Female

DRUGS (1)
  1. PAXIL [Suspect]
     Indication: DRUG USE FOR UNKNOWN INDICATION
     Route: 048

REACTIONS (5)
  - ADVERSE DRUG REACTION [None]
  - DRUG INEFFECTIVE [None]
  - FEELING ABNORMAL [None]
  - PSYCHOSOMATIC DISEASE [None]
  - WITHDRAWAL SYNDROME [None]
